FAERS Safety Report 11723282 (Version 1)
Quarter: 2015Q4

REPORT INFORMATION
  Report Type: Spontaneous
  Country: CA (occurrence: CA)
  Receive Date: 20151111
  Receipt Date: 20151111
  Transmission Date: 20160304
  Serious: Yes (Death, Congenital Anomaly, Other)
  Sender: FDA-Public Use
  Company Number: PHHY2015CA142604

PATIENT
  Sex: Male

DRUGS (1)
  1. ZOFRAN [Suspect]
     Active Substance: ONDANSETRON HYDROCHLORIDE
     Indication: FOETAL EXPOSURE DURING PREGNANCY
     Dosage: UNK
     Route: 064
     Dates: start: 20140605

REACTIONS (12)
  - Patent ductus arteriosus [Unknown]
  - Vein disorder [Unknown]
  - Premature baby [Unknown]
  - Foetal exposure during pregnancy [Unknown]
  - Congenital anomaly [Fatal]
  - Laryngeal cleft [Unknown]
  - Pyelocaliectasis [Unknown]
  - Kidney malformation [Unknown]
  - Low set ears [Unknown]
  - Premature labour [Unknown]
  - Anomalous pulmonary venous connection [Unknown]
  - Heart disease congenital [Fatal]
